FAERS Safety Report 4612520-5 (Version None)
Quarter: 2005Q1

REPORT INFORMATION
  Report Type: 
  Country: None (occurrence: None)
  Receive Date: 20050316
  Receipt Date: 20050316
  Transmission Date: 20050727
  Serious: No
  Sender: FDA-Public Use
  Company Number: None

PATIENT
  Age: 68 Year
  Sex: Female
  Weight: 67.1324 kg

DRUGS (10)
  1. FOSAMAX [Suspect]
     Indication: OSTEOPOROSIS
     Dosage: 10MG OR 70MG
     Dates: start: 20000101, end: 20040101
  2. FLOVENT [Concomitant]
  3. ALBUTEROL [Concomitant]
  4. SINGULAIR [Concomitant]
  5. CALCIUM GLUCONATE [Concomitant]
  6. B12 [Concomitant]
  7. NASONEX [Concomitant]
  8. CLARITIN [Concomitant]
  9. RANITIDINE [Concomitant]
  10. VISTARIL [Concomitant]

REACTIONS (2)
  - GASTRIC HYPERPLASIA [None]
  - MASS [None]
